FAERS Safety Report 13374236 (Version 1)
Quarter: 2017Q1

REPORT INFORMATION
  Report Type: Report from Study
  Country: US (occurrence: US)
  Receive Date: 20170327
  Receipt Date: 20170327
  Transmission Date: 20170429
  Serious: Yes (Other)
  Sender: FDA-Public Use
  Company Number: US-009507513-1703USA008730

PATIENT
  Sex: Female

DRUGS (2)
  1. IMPLANON [Suspect]
     Active Substance: ETONOGESTREL
     Indication: CONTRACEPTION
     Dosage: 1 IMPLANT, UNK
     Route: 059
  2. NEXPLANON [Suspect]
     Active Substance: ETONOGESTREL
     Indication: CONTRACEPTION
     Dosage: 1 IMPLANT, UNK
     Route: 059

REACTIONS (15)
  - Memory impairment [Recovering/Resolving]
  - Pain in extremity [Recovered/Resolved]
  - Amenorrhoea [Unknown]
  - Frustration tolerance decreased [Recovering/Resolving]
  - Weight increased [Unknown]
  - Hypertension [Unknown]
  - Incorrect drug administration duration [Unknown]
  - Haemorrhage [Recovered/Resolved]
  - Negative thoughts [Recovering/Resolving]
  - Polycystic ovaries [Unknown]
  - Stress [Recovering/Resolving]
  - Depression [Recovering/Resolving]
  - Contusion [Recovered/Resolved]
  - Adverse event [Unknown]
  - Anxiety [Recovering/Resolving]
